FAERS Safety Report 15289575 (Version 3)
Quarter: 2018Q3

REPORT INFORMATION
  Report Type: Report from Study
  Country: US (occurrence: US)
  Receive Date: 20180817
  Receipt Date: 20180905
  Transmission Date: 20181010
  Serious: Yes (Death)
  Sender: FDA-Public Use
  Company Number: US-PFIZER INC-2018331603

PATIENT
  Age: 35 Year
  Sex: Female

DRUGS (4)
  1. BUPRENORPHINE. [Suspect]
     Active Substance: BUPRENORPHINE
     Dosage: UNK
  2. LORAZEPAM. [Suspect]
     Active Substance: LORAZEPAM
     Dosage: UNK
  3. PREGABALIN. [Suspect]
     Active Substance: PREGABALIN
     Dosage: UNK
  4. AMITRIPTYLINE [Suspect]
     Active Substance: AMITRIPTYLINE
     Dosage: UNK

REACTIONS (9)
  - Depressed level of consciousness [Fatal]
  - Toxicity to various agents [Fatal]
  - Tachycardia [Fatal]
  - Coma [Fatal]
  - Anion gap [Fatal]
  - Electrocardiogram QRS complex prolonged [Fatal]
  - Metabolic acidosis [Fatal]
  - Hypotension [Fatal]
  - Respiratory depression [Fatal]
